FAERS Safety Report 5644099-3 (Version None)
Quarter: 2008Q1

REPORT INFORMATION
  Report Type: 
  Country: None (occurrence: None)
  Receive Date: 20080226
  Receipt Date: 20080212
  Transmission Date: 20080703
  Serious: Yes (Hospitalization, Other)
  Sender: FDA-Public Use
  Company Number: PHBS2008EC02093

PATIENT
  Age: 43 Year
  Sex: Male

DRUGS (3)
  1. DICLOFENAC SODIUM [Suspect]
     Indication: ARTHRALGIA
     Dosage: 1 TABLETS/DAY, ORAL
     Route: 048
     Dates: start: 20080119, end: 20080201
  2. COMTREX FORTE (ACETAMINOPHEN, CHLORPHENIRAM, DEXTROMETHORPHAN HBR ,PSE [Suspect]
     Dosage: UP TO 6 TABLETS/DAY, ORAL
     Route: 048
     Dates: start: 20080119, end: 20080201
  3. PANTOPRAZOLE SODIUM [Suspect]
     Dosage: 40 MG, QD, ORAL
     Route: 048

REACTIONS (5)
  - ABDOMINAL PAIN UPPER [None]
  - ASTHENIA [None]
  - GASTRIC HAEMORRHAGE [None]
  - GASTRITIS [None]
  - MELAENA [None]
